FAERS Safety Report 22214762 (Version 1)
Quarter: 2023Q2

REPORT INFORMATION
  Report Type: Spontaneous
  Country: FR (occurrence: FR)
  Receive Date: 20230415
  Receipt Date: 20230415
  Transmission Date: 20230721
  Serious: Yes (Other)
  Sender: FDA-Public Use
  Company Number: None

PATIENT
  Age: 53 Year
  Sex: Male
  Weight: 102.5 kg

DRUGS (26)
  1. SCEMBLIX [Suspect]
     Active Substance: ASCIMINIB HYDROCHLORIDE
     Indication: Philadelphia positive acute lymphocytic leukaemia
     Dosage: 10 DOSAGE FORM, QD
     Route: 048
     Dates: start: 20221119, end: 20230207
  2. SCEMBLIX [Suspect]
     Active Substance: ASCIMINIB HYDROCHLORIDE
     Dosage: 10 DOSAGE FORM, QD
     Route: 048
     Dates: start: 20230217, end: 20230227
  3. SCEMBLIX [Suspect]
     Active Substance: ASCIMINIB HYDROCHLORIDE
     Dosage: 3 DOSAGE FORM, QD
     Route: 048
     Dates: start: 20230227, end: 20230301
  4. VALACYCLOVIR HYDROCHLORIDE [Concomitant]
     Active Substance: VALACYCLOVIR HYDROCHLORIDE
     Indication: Insomnia
     Dosage: 1 DOSAGE FORM, QD
     Route: 048
     Dates: start: 20221201
  5. VALACYCLOVIR HYDROCHLORIDE [Concomitant]
     Active Substance: VALACYCLOVIR HYDROCHLORIDE
     Indication: Blood creatinine
  6. ALFUZOSIN [Concomitant]
     Active Substance: ALFUZOSIN
     Indication: Urinary retention
     Dosage: 1 DOSAGE FORM, QD  LP (EXTEND RELEASE TABLET)
     Route: 048
     Dates: start: 20221104, end: 20221203
  7. TRANEXAMIC ACID [Concomitant]
     Active Substance: TRANEXAMIC ACID
     Indication: Product used for unknown indication
     Dosage: 2 DOSAGE FORM, QD (STENGHT-  0,5 G/ 5 ML)
     Route: 042
     Dates: start: 20221116, end: 20221221
  8. URAPIDIL HYDROCHLORIDE [Concomitant]
     Active Substance: URAPIDIL HYDROCHLORIDE
     Indication: Pyelonephritis
     Dosage: 2 DOSAGE FORM, QD (EXTEND REALSED TABLET)
     Route: 048
     Dates: start: 20221111
  9. PREGABALIN [Concomitant]
     Active Substance: PREGABALIN
     Indication: Hypertension
     Dosage: 1 DOSAGE FORM, QD ( G?LULE)
     Route: 048
     Dates: start: 20221011, end: 20221221
  10. AMLODIPINE [Concomitant]
     Active Substance: AMLODIPINE BESYLATE
     Indication: Hypertension
     Dosage: 1 DOSAGE FORM, QD
     Route: 048
     Dates: start: 20221030
  11. AMLODIPINE [Concomitant]
     Active Substance: AMLODIPINE BESYLATE
     Indication: Philadelphia positive acute lymphocytic leukaemia
  12. BACTRIM [Concomitant]
     Active Substance: SULFAMETHOXAZOLE\TRIMETHOPRIM
     Indication: Opportunistic infection prophylaxis
     Dosage: 12 DOSAGE FORM, QD
     Route: 042
     Dates: start: 20221130, end: 20221221
  13. BACTRIM [Concomitant]
     Active Substance: SULFAMETHOXAZOLE\TRIMETHOPRIM
     Indication: Neuralgia
  14. PHLOROGLUCINOL\1,3,5-TRIMETHOXYBENZENE [Concomitant]
     Active Substance: PHLOROGLUCINOL\1,3,5-TRIMETHOXYBENZENE
     Indication: Pain
     Dosage: 2 DOSAGE FORM, QD
     Route: 042
     Dates: start: 20221116, end: 20221221
  15. PHLOROGLUCINOL\1,3,5-TRIMETHOXYBENZENE [Concomitant]
     Active Substance: PHLOROGLUCINOL\1,3,5-TRIMETHOXYBENZENE
     Indication: Hypertension
  16. MEROPENEM [Concomitant]
     Active Substance: MEROPENEM
     Indication: Pyelonephritis
     Dosage: 6 DOSAGE FORM, QD
     Route: 042
     Dates: start: 20221120, end: 20221212
  17. MEROPENEM [Concomitant]
     Active Substance: MEROPENEM
     Indication: Opportunistic infection prophylaxis
  18. ACUPAN [Concomitant]
     Active Substance: NEFOPAM HYDROCHLORIDE
     Indication: Pain
     Dosage: 120 MG, QD
     Route: 042
  19. SULFATO MAGNESIA [Concomitant]
     Indication: Pyelonephritis
     Dosage: 3 G, QD STRENGHT-  0,15 G/ML)
     Route: 042
     Dates: start: 20221102, end: 20221201
  20. LINEZOLID [Concomitant]
     Active Substance: LINEZOLID
     Indication: Pain
     Dosage: 1200 MG, QD (STRENGHT- 100 MG/5 ML)
     Route: 042
     Dates: start: 20221122, end: 20221212
  21. FENOFIBRATE ARROW [Concomitant]
     Indication: Mineral supplementation
     Dosage: 1 DOSAGE FORM, QD
     Route: 048
  22. CLOBETASOL PROPIONATE [Concomitant]
     Active Substance: CLOBETASOL PROPIONATE
     Indication: Opportunistic infection prophylaxis
     Dosage: UNK
     Route: 065
  23. ZOPICLONE [Concomitant]
     Active Substance: ZOPICLONE
     Indication: Eczema
     Dosage: 1 DOSAGE FORM, QD (DRY FILM TABLET)
     Route: 048
  24. PANTOPRAZOLE SODIUM [Concomitant]
     Active Substance: PANTOPRAZOLE SODIUM
     Indication: Eczema
     Dosage: 1 DOSAGE FORM, QD
     Route: 042
  25. FUROSEMIDE [Concomitant]
     Active Substance: FUROSEMIDE
     Indication: Gastritis prophylaxis
     Dosage: 1 DOSAGE FORM, QD
     Route: 048
  26. NERISONE-C [Concomitant]
     Indication: Opportunistic infection prophylaxis
     Dosage: UNK
     Route: 065

REACTIONS (2)
  - Philadelphia positive acute lymphocytic leukaemia [Recovered/Resolved]
  - Philadelphia positive acute lymphocytic leukaemia [Recovered/Resolved]

NARRATIVE: CASE EVENT DATE: 20221129
